FAERS Safety Report 10538871 (Version 2)
Quarter: 2014Q4

REPORT INFORMATION
  Report Type: Spontaneous
  Country: US (occurrence: US)
  Receive Date: 20141023
  Receipt Date: 20141023
  Transmission Date: 20150529
  Serious: Yes (Other)
  Sender: FDA-Public Use
  Company Number: US-BAYER-2014-152474

PATIENT
  Sex: Female

DRUGS (1)
  1. DTIC-DOME [Suspect]
     Active Substance: DACARBAZINE
     Indication: LEIOMYOSARCOMA

REACTIONS (3)
  - General physical health deterioration [None]
  - Off label use [None]
  - Leiomyosarcoma [None]
